FAERS Safety Report 8011454 (Version 4)
Quarter: 2013Q1

REPORT INFORMATION
  Report Type: Spontaneous
  Country: US (occurrence: US)
  Receive Date: 20110627
  Receipt Date: 20130326
  Transmission Date: 20140127
  Serious: Yes (Hospitalization, Other)
  Sender: FDA-Public Use
  Company Number: US-ASTRAZENECA-2010SE28339

PATIENT
  Age: 69 Year
  Sex: Female

DRUGS (17)
  1. ATENOLOL [Suspect]
     Route: 048
  2. NEXIUM [Suspect]
     Indication: GASTROOESOPHAGEAL REFLUX DISEASE
     Route: 048
  3. PRILOSEC [Suspect]
     Indication: GASTROOESOPHAGEAL REFLUX DISEASE
     Route: 048
  4. LISINOPRIL [Suspect]
     Route: 048
  5. TEKTURNA [Concomitant]
     Route: 048
  6. SOTALOL [Concomitant]
     Dosage: TWO IN THE MORNING AND TWO IN THE AFTERNOON
  7. ALPRAZOLAM [Concomitant]
  8. ASPIRIN [Concomitant]
     Route: 048
  9. PERCOCET [Concomitant]
     Dosage: 10/325 AS NEEDED
  10. DILTIAZEM [Concomitant]
  11. POTASSIUM [Concomitant]
  12. LASIX [Concomitant]
  13. SYNTHROID [Concomitant]
  14. CLONIDINE [Concomitant]
     Indication: HYPERTENSION
  15. FENTANYL [Concomitant]
     Route: 062
  16. FUROSEMIDE [Concomitant]
     Route: 048
  17. VERAPAMIL [Concomitant]
     Route: 048

REACTIONS (38)
  - Atrial fibrillation [Unknown]
  - Hypotension [Unknown]
  - Hyperhidrosis [Unknown]
  - Renal artery fibromuscular dysplasia [Unknown]
  - Heart rate increased [Unknown]
  - Hyperkalaemia [Unknown]
  - Presyncope [Unknown]
  - Palpitations [Unknown]
  - Pneumonia [Unknown]
  - Bradycardia [Unknown]
  - Sick sinus syndrome [Unknown]
  - Atrial flutter [Unknown]
  - Asthenia [Unknown]
  - Gastrooesophageal reflux disease [Unknown]
  - Hyperchlorhydria [Unknown]
  - Back pain [Unknown]
  - Rales [Unknown]
  - Blunted affect [Unknown]
  - Chest pain [Unknown]
  - Connective tissue disorder [Unknown]
  - Ear infection [Unknown]
  - Cardiac murmur [Unknown]
  - Hernia [Unknown]
  - Pyrexia [Unknown]
  - Hypothyroidism [Unknown]
  - Systemic lupus erythematosus [Unknown]
  - Neuropathy peripheral [Unknown]
  - Dyspnoea [Unknown]
  - Gait disturbance [Unknown]
  - Urinary tract infection [Unknown]
  - Pain [Unknown]
  - Vertigo [Unknown]
  - Drug hypersensitivity [Unknown]
  - Nausea [Unknown]
  - Abdominal pain upper [Unknown]
  - Abdominal pain upper [Unknown]
  - Intentional drug misuse [Unknown]
  - Drug ineffective [Unknown]
